FAERS Safety Report 8824787 (Version 1)
Quarter: 2012Q4

REPORT INFORMATION
  Report Type: 
  Country: US (occurrence: US)
  Receive Date: 20121004
  Receipt Date: 20121004
  Transmission Date: 20130627
  Serious: Yes (Death)
  Sender: FDA-Public Use
  Company Number: PHEH2012US019395

PATIENT
  Sex: Male

DRUGS (5)
  1. AFINITOR [Suspect]
     Indication: RENAL CANCER
     Dosage: 10 mg, Q48H
     Route: 048
  2. PROCARDIA XL [Concomitant]
     Dosage: 30 mg, UNK
  3. FISH OIL [Concomitant]
     Dosage: 1000 mg, UNK
  4. CENTRUM [Concomitant]
  5. MOTRIN IB [Concomitant]
     Dosage: 200 mg, UNK

REACTIONS (1)
  - Death [Fatal]
